FAERS Safety Report 16444645 (Version 1)
Quarter: 2019Q3

REPORT INFORMATION
  Report Type: Spontaneous
  Country: US (occurrence: US)
  Receive Date: 20190618
  Receipt Date: 20190618
  Transmission Date: 20191004
  Serious: Yes (Other)
  Sender: FDA-Public Use
  Company Number: None

PATIENT
  Age: 60 Year
  Sex: Female
  Weight: 54 kg

DRUGS (3)
  1. AIMOVIG [Suspect]
     Active Substance: ERENUMAB-AOOE
     Indication: MIGRAINE
     Dosage: ?          QUANTITY:1 INJECTION(S);OTHER FREQUENCY:ONCE A MONTH;OTHER ROUTE:INJECTED IN THIGH OR STOMACH?
     Dates: start: 20190218, end: 20190523
  2. BIEST 20/80 [Concomitant]
  3. PROGESTERONE 150 MG SUPPOSITORY [Concomitant]

REACTIONS (13)
  - Anxiety [None]
  - Muscle spasms [None]
  - Migraine [None]
  - Memory impairment [None]
  - Restlessness [None]
  - Drug ineffective [None]
  - Constipation [None]
  - Panic attack [None]
  - General physical health deterioration [None]
  - Dyspnoea [None]
  - Withdrawal syndrome [None]
  - Vision blurred [None]
  - Cognitive disorder [None]

NARRATIVE: CASE EVENT DATE: 20190523
